FAERS Safety Report 5325352-X (Version None)
Quarter: 2007Q2

REPORT INFORMATION
  Report Type: 
  Country: None (occurrence: None)
  Receive Date: 20070515
  Receipt Date: 20070502
  Transmission Date: 20071010
  Serious: Yes (Other)
  Sender: FDA-Public Use
  Company Number: GB-PFIZER INC-2007036604

PATIENT
  Sex: Female

DRUGS (3)
  1. LYRICA [Suspect]
     Route: 048
  2. PHENYTOIN [Suspect]
  3. KEPPRA [Suspect]

REACTIONS (3)
  - BALANCE DISORDER [None]
  - DIPLOPIA [None]
  - EPILEPSY [None]
